FAERS Safety Report 19294845 (Version 2)
Quarter: 2021Q2

REPORT INFORMATION
  Report Type: Spontaneous
  Country: US (occurrence: US)
  Receive Date: 20210524
  Receipt Date: 20210624
  Transmission Date: 20210717
  Serious: No
  Sender: FDA-Public Use
  Company Number: US-APOTEX-2021AP011062

PATIENT
  Sex: Male

DRUGS (1)
  1. TRAVOPROST. [Suspect]
     Active Substance: TRAVOPROST
     Indication: GLAUCOMA
     Dosage: 2 GTT DROPS, QD (1 DROP ONCE A DAY ON BOTH EYES)
     Route: 047

REACTIONS (3)
  - No adverse event [Unknown]
  - Extra dose administered [Unknown]
  - Product delivery mechanism issue [Unknown]
